FAERS Safety Report 8274165-8 (Version None)
Quarter: 2012Q2

REPORT INFORMATION
  Report Type: 
  Country: None (occurrence: None)
  Receive Date: 20120411
  Receipt Date: 20120402
  Transmission Date: 20120825
  Serious: Yes (Other)
  Sender: FDA-Public Use
  Company Number: JP-ASTRAZENECA-2012SE22750

PATIENT
  Age: 62 Year
  Sex: Female

DRUGS (1)
  1. OMEPRAZOLE [Suspect]
     Dosage: 10
     Route: 048
     Dates: start: 20101201, end: 20110201

REACTIONS (1)
  - OCULOMUCOCUTANEOUS SYNDROME [None]
